FAERS Safety Report 17557475 (Version 2)
Quarter: 2020Q1

REPORT INFORMATION
  Report Type: Spontaneous
  Country: US (occurrence: US)
  Receive Date: 20200318
  Receipt Date: 20200318
  Transmission Date: 20200409
  Serious: No
  Sender: FDA-Public Use
  Company Number: US-EMERGENT BIOSOLUTIONS,-PVX201907-000554

PATIENT
  Sex: Female

DRUGS (1)
  1. VIVOTIF [Suspect]
     Active Substance: SALMONELLA TYPHI TY21A LIVE ANTIGEN
     Indication: IMMUNISATION
     Route: 048

REACTIONS (3)
  - Lymphadenopathy [Unknown]
  - Myalgia [Unknown]
  - Abdominal pain [Unknown]
